FAERS Safety Report 20714362 (Version 1)
Quarter: 2022Q2

REPORT INFORMATION
  Report Type: Spontaneous
  Country: FR (occurrence: FR)
  Receive Date: 20220415
  Receipt Date: 20220415
  Transmission Date: 20220720
  Serious: Yes (Other)
  Sender: FDA-Public Use
  Company Number: FR-AMERICAN REGENT INC-2022001011

PATIENT
  Age: 61 Year
  Sex: Male

DRUGS (1)
  1. FERINJECT [Suspect]
     Active Substance: FERRIC CARBOXYMALTOSE
     Indication: Anaemia
     Dosage: UNK
     Route: 042
     Dates: start: 20191029

REACTIONS (1)
  - Osteomalacia [Not Recovered/Not Resolved]

NARRATIVE: CASE EVENT DATE: 20210701
